FAERS Safety Report 25639323 (Version 1)
Quarter: 2025Q3

REPORT INFORMATION
  Report Type: Spontaneous
  Country: GB (occurrence: GB)
  Receive Date: 20250804
  Receipt Date: 20250804
  Transmission Date: 20251020
  Serious: Yes (Hospitalization, Other)
  Sender: MYLAN
  Company Number: GB-MHRA-TPP25616441C10764141YC1753684706568

PATIENT
  Age: 78 Year
  Sex: Female
  Weight: 55 kg

DRUGS (52)
  1. RIFAMPIN [Suspect]
     Active Substance: RIFAMPIN
     Indication: Ill-defined disorder
  2. RIFAMPIN [Suspect]
     Active Substance: RIFAMPIN
     Route: 048
  3. RIFAMPIN [Suspect]
     Active Substance: RIFAMPIN
     Route: 048
  4. RIFAMPIN [Suspect]
     Active Substance: RIFAMPIN
  5. ETHAMBUTOL [Suspect]
     Active Substance: ETHAMBUTOL HYDROCHLORIDE
     Indication: Ill-defined disorder
     Dates: start: 20250508, end: 20250518
  6. ETHAMBUTOL [Suspect]
     Active Substance: ETHAMBUTOL HYDROCHLORIDE
     Route: 048
     Dates: start: 20250508, end: 20250518
  7. ETHAMBUTOL [Suspect]
     Active Substance: ETHAMBUTOL HYDROCHLORIDE
     Route: 048
     Dates: start: 20250508, end: 20250518
  8. ETHAMBUTOL [Suspect]
     Active Substance: ETHAMBUTOL HYDROCHLORIDE
     Dates: start: 20250508, end: 20250518
  9. BETAMETHASONE VALERATE [Concomitant]
     Active Substance: BETAMETHASONE VALERATE
     Indication: Ill-defined disorder
     Dosage: UNK, BID (POTENT STEROID CREAM - APPLY TWICE A DAY FOR T)
     Dates: start: 20250430, end: 20250507
  10. BETAMETHASONE VALERATE [Concomitant]
     Active Substance: BETAMETHASONE VALERATE
     Dosage: UNK, BID (POTENT STEROID CREAM - APPLY TWICE A DAY FOR T)
     Route: 065
     Dates: start: 20250430, end: 20250507
  11. BETAMETHASONE VALERATE [Concomitant]
     Active Substance: BETAMETHASONE VALERATE
     Dosage: UNK, BID (POTENT STEROID CREAM - APPLY TWICE A DAY FOR T)
     Route: 065
     Dates: start: 20250430, end: 20250507
  12. BETAMETHASONE VALERATE [Concomitant]
     Active Substance: BETAMETHASONE VALERATE
     Dosage: UNK, BID (POTENT STEROID CREAM - APPLY TWICE A DAY FOR T)
     Dates: start: 20250430, end: 20250507
  13. PYRIDOXINE [Concomitant]
     Active Substance: PYRIDOXINE
     Indication: Ill-defined disorder
     Dosage: 2 DOSAGE FORM, QD (TAKE TWO TABLETS DAILY)
     Dates: start: 20250724
  14. PYRIDOXINE [Concomitant]
     Active Substance: PYRIDOXINE
     Dosage: 2 DOSAGE FORM, QD (TAKE TWO TABLETS DAILY)
     Route: 065
     Dates: start: 20250724
  15. PYRIDOXINE [Concomitant]
     Active Substance: PYRIDOXINE
     Dosage: 2 DOSAGE FORM, QD (TAKE TWO TABLETS DAILY)
     Route: 065
     Dates: start: 20250724
  16. PYRIDOXINE [Concomitant]
     Active Substance: PYRIDOXINE
     Dosage: 2 DOSAGE FORM, QD (TAKE TWO TABLETS DAILY)
     Dates: start: 20250724
  17. CYCLOSERINE [Concomitant]
     Active Substance: CYCLOSERINE
     Indication: Ill-defined disorder
     Dosage: 1 DOSAGE FORM, QD (TAKE ONE TABLET DAILY)
     Dates: start: 20250724
  18. CYCLOSERINE [Concomitant]
     Active Substance: CYCLOSERINE
     Dosage: 1 DOSAGE FORM, QD (TAKE ONE TABLET DAILY)
     Route: 065
     Dates: start: 20250724
  19. CYCLOSERINE [Concomitant]
     Active Substance: CYCLOSERINE
     Dosage: 1 DOSAGE FORM, QD (TAKE ONE TABLET DAILY)
     Route: 065
     Dates: start: 20250724
  20. CYCLOSERINE [Concomitant]
     Active Substance: CYCLOSERINE
     Dosage: 1 DOSAGE FORM, QD (TAKE ONE TABLET DAILY)
     Dates: start: 20250724
  21. CLOFAZIMINE [Concomitant]
     Active Substance: CLOFAZIMINE
     Indication: Ill-defined disorder
     Dosage: 2 DOSAGE FORM, QD (TAKE TWO TABLETS DAILY)
     Dates: start: 20250724
  22. CLOFAZIMINE [Concomitant]
     Active Substance: CLOFAZIMINE
     Dosage: 2 DOSAGE FORM, QD (TAKE TWO TABLETS DAILY)
     Route: 065
     Dates: start: 20250724
  23. CLOFAZIMINE [Concomitant]
     Active Substance: CLOFAZIMINE
     Dosage: 2 DOSAGE FORM, QD (TAKE TWO TABLETS DAILY)
     Route: 065
     Dates: start: 20250724
  24. CLOFAZIMINE [Concomitant]
     Active Substance: CLOFAZIMINE
     Dosage: 2 DOSAGE FORM, QD (TAKE TWO TABLETS DAILY)
     Dates: start: 20250724
  25. LINEZOLID [Concomitant]
     Active Substance: LINEZOLID
     Indication: Ill-defined disorder
     Dosage: 1 DOSAGE FORM, QD (TAKE ONE TABLET DAILY)
     Dates: start: 20250724
  26. LINEZOLID [Concomitant]
     Active Substance: LINEZOLID
     Dosage: 1 DOSAGE FORM, QD (TAKE ONE TABLET DAILY)
     Route: 065
     Dates: start: 20250724
  27. LINEZOLID [Concomitant]
     Active Substance: LINEZOLID
     Dosage: 1 DOSAGE FORM, QD (TAKE ONE TABLET DAILY)
     Route: 065
     Dates: start: 20250724
  28. LINEZOLID [Concomitant]
     Active Substance: LINEZOLID
     Dosage: 1 DOSAGE FORM, QD (TAKE ONE TABLET DAILY)
     Dates: start: 20250724
  29. MOXIFLOXACIN [Concomitant]
     Active Substance: MOXIFLOXACIN
     Indication: Ill-defined disorder
     Dosage: 1 DOSAGE FORM, QD (TAKE ONE TABLET DAILY)
     Dates: start: 20250724
  30. MOXIFLOXACIN [Concomitant]
     Active Substance: MOXIFLOXACIN
     Dosage: 1 DOSAGE FORM, QD (TAKE ONE TABLET DAILY)
     Route: 065
     Dates: start: 20250724
  31. MOXIFLOXACIN [Concomitant]
     Active Substance: MOXIFLOXACIN
     Dosage: 1 DOSAGE FORM, QD (TAKE ONE TABLET DAILY)
     Route: 065
     Dates: start: 20250724
  32. MOXIFLOXACIN [Concomitant]
     Active Substance: MOXIFLOXACIN
     Dosage: 1 DOSAGE FORM, QD (TAKE ONE TABLET DAILY)
     Dates: start: 20250724
  33. BEDAQUILINE [Concomitant]
     Active Substance: BEDAQUILINE
     Indication: Ill-defined disorder
     Dosage: 2 DOSAGE FORM, 3XW (TAKE TWO TABLETS THREE TIMES A WEEK)
     Dates: start: 20250724
  34. BEDAQUILINE [Concomitant]
     Active Substance: BEDAQUILINE
     Dosage: 2 DOSAGE FORM, 3XW (TAKE TWO TABLETS THREE TIMES A WEEK)
     Route: 065
     Dates: start: 20250724
  35. BEDAQUILINE [Concomitant]
     Active Substance: BEDAQUILINE
     Dosage: 2 DOSAGE FORM, 3XW (TAKE TWO TABLETS THREE TIMES A WEEK)
     Route: 065
     Dates: start: 20250724
  36. BEDAQUILINE [Concomitant]
     Active Substance: BEDAQUILINE
     Dosage: 2 DOSAGE FORM, 3XW (TAKE TWO TABLETS THREE TIMES A WEEK)
     Dates: start: 20250724
  37. CALCIUM CARBONATE\CHOLECALCIFEROL [Concomitant]
     Active Substance: CALCIUM CARBONATE\CHOLECALCIFEROL
     Indication: Ill-defined disorder
     Dosage: 1 DOSAGE FORM, QD (TAKE ONE DAILY)
     Dates: start: 20231003
  38. CALCIUM CARBONATE\CHOLECALCIFEROL [Concomitant]
     Active Substance: CALCIUM CARBONATE\CHOLECALCIFEROL
     Dosage: 1 DOSAGE FORM, QD (TAKE ONE DAILY)
     Route: 065
     Dates: start: 20231003
  39. CALCIUM CARBONATE\CHOLECALCIFEROL [Concomitant]
     Active Substance: CALCIUM CARBONATE\CHOLECALCIFEROL
     Dosage: 1 DOSAGE FORM, QD (TAKE ONE DAILY)
     Route: 065
     Dates: start: 20231003
  40. CALCIUM CARBONATE\CHOLECALCIFEROL [Concomitant]
     Active Substance: CALCIUM CARBONATE\CHOLECALCIFEROL
     Dosage: 1 DOSAGE FORM, QD (TAKE ONE DAILY)
     Dates: start: 20231003
  41. FELODIPINE [Concomitant]
     Active Substance: FELODIPINE
     Indication: Ill-defined disorder
     Dosage: 1 DOSAGE FORM, QD (TAKE ONE DAILY)
     Dates: start: 20240430, end: 20250624
  42. FELODIPINE [Concomitant]
     Active Substance: FELODIPINE
     Dosage: 1 DOSAGE FORM, QD (TAKE ONE DAILY)
     Route: 065
     Dates: start: 20240430, end: 20250624
  43. FELODIPINE [Concomitant]
     Active Substance: FELODIPINE
     Dosage: 1 DOSAGE FORM, QD (TAKE ONE DAILY)
     Route: 065
     Dates: start: 20240430, end: 20250624
  44. FELODIPINE [Concomitant]
     Active Substance: FELODIPINE
     Dosage: 1 DOSAGE FORM, QD (TAKE ONE DAILY)
     Dates: start: 20240430, end: 20250624
  45. SYMBICORT [Concomitant]
     Active Substance: BUDESONIDE\FORMOTEROL FUMARATE DIHYDRATE
     Indication: Ill-defined disorder
     Dosage: 1 DOSAGE FORM, BID (INHALE ONE PUFF TWICE A DAY FOR SYMPTOM MAINTEN)
     Dates: start: 20240531
  46. SYMBICORT [Concomitant]
     Active Substance: BUDESONIDE\FORMOTEROL FUMARATE DIHYDRATE
     Dosage: 1 DOSAGE FORM, BID (INHALE ONE PUFF TWICE A DAY FOR SYMPTOM MAINTEN)
     Route: 055
     Dates: start: 20240531
  47. SYMBICORT [Concomitant]
     Active Substance: BUDESONIDE\FORMOTEROL FUMARATE DIHYDRATE
     Dosage: 1 DOSAGE FORM, BID (INHALE ONE PUFF TWICE A DAY FOR SYMPTOM MAINTEN)
     Route: 055
     Dates: start: 20240531
  48. SYMBICORT [Concomitant]
     Active Substance: BUDESONIDE\FORMOTEROL FUMARATE DIHYDRATE
     Dosage: 1 DOSAGE FORM, BID (INHALE ONE PUFF TWICE A DAY FOR SYMPTOM MAINTEN)
     Dates: start: 20240531
  49. PROLIA [Concomitant]
     Active Substance: DENOSUMAB
     Indication: Ill-defined disorder
  50. PROLIA [Concomitant]
     Active Substance: DENOSUMAB
     Route: 065
  51. PROLIA [Concomitant]
     Active Substance: DENOSUMAB
     Route: 065
  52. PROLIA [Concomitant]
     Active Substance: DENOSUMAB

REACTIONS (2)
  - Optic neuritis [Recovered/Resolved]
  - Drug reaction with eosinophilia and systemic symptoms [Recovered/Resolved]

NARRATIVE: CASE EVENT DATE: 20250508
